FAERS Safety Report 10154127 (Version 6)
Quarter: 2014Q3

REPORT INFORMATION
  Report Type: Spontaneous
  Country: US (occurrence: None)
  Receive Date: 20140502
  Receipt Date: 20140813
  Transmission Date: 20150326
  Serious: Yes (Death, Hospitalization, Other)
  Sender: FDA-Public Use
  Company Number: UTC-047663

PATIENT
  Age: 50 Year
  Sex: Female
  Weight: 113.3 kg

DRUGS (3)
  1. TYVASO [Suspect]
     Active Substance: TREPROSTINIL
     Indication: PULMONARY ARTERIAL HYPERTENSION
     Dosage: 18-54 MICROGRAMS (4 IN 1 D), INHALATION
     Route: 055
     Dates: start: 20140401
  2. ADCIRCA [Concomitant]
     Active Substance: TADALAFIL
  3. LETAIRIS [Concomitant]
     Active Substance: AMBRISENTAN

REACTIONS (6)
  - Pyrexia [None]
  - Neoplasm malignant [None]
  - Disease progression [None]
  - Pain in extremity [None]
  - Plasma cell myeloma [None]
  - Pancytopenia [None]

NARRATIVE: CASE EVENT DATE: 20140413
